FAERS Safety Report 10570609 (Version 1)
Quarter: 2014Q4

REPORT INFORMATION
  Report Type: Spontaneous
  Country: US (occurrence: US)
  Receive Date: 20141107
  Receipt Date: 20141107
  Transmission Date: 20150529
  Serious: No
  Sender: FDA-Public Use
  Company Number: US-ASTELLAS-2014US009692

PATIENT
  Age: 34 Year
  Sex: Male

DRUGS (1)
  1. ADENOSCAN [Suspect]
     Active Substance: ADENOSINE
     Indication: CARDIAC IMAGING PROCEDURE
     Dosage: UNK, UNKNOWN FREQ.
     Route: 065
     Dates: start: 201407

REACTIONS (2)
  - Abdominal pain upper [Unknown]
  - Off label use [Unknown]
